FAERS Safety Report 6035928-2 (Version None)
Quarter: 2009Q1

REPORT INFORMATION
  Report Type: 
  Country: None (occurrence: None)
  Receive Date: 20090113
  Receipt Date: 20090109
  Transmission Date: 20090719
  Serious: Yes (Hospitalization, Other)
  Sender: FDA-Public Use
  Company Number: B0547439A

PATIENT
  Age: 29 Year
  Sex: Female
  Weight: 43 kg

DRUGS (3)
  1. LAPATINIB [Suspect]
     Dosage: 1250MG PER DAY
     Route: 048
     Dates: start: 20081001
  2. CAPECITABINE [Suspect]
     Dosage: 2600MG PER DAY
     Route: 048
     Dates: start: 20081001
  3. ENSURE [Suspect]
     Route: 065

REACTIONS (9)
  - ABDOMINAL DISCOMFORT [None]
  - ALANINE AMINOTRANSFERASE INCREASED [None]
  - ASPARTATE AMINOTRANSFERASE INCREASED [None]
  - BLOOD ALKALINE PHOSPHATASE INCREASED [None]
  - DIARRHOEA [None]
  - LIVER FUNCTION TEST ABNORMAL [None]
  - METASTASES TO LIVER [None]
  - RASH [None]
  - THROMBOCYTOPENIA [None]
